FAERS Safety Report 18157674 (Version 2)
Quarter: 2020Q3

REPORT INFORMATION
  Report Type: Spontaneous
  Country: JP (occurrence: JP)
  Receive Date: 20200817
  Receipt Date: 20200915
  Transmission Date: 20201103
  Serious: Yes (Hospitalization)
  Sender: FDA-Public Use
  Company Number: JP-SUNOVION-2020DSP009318

PATIENT
  Age: 47 Year
  Sex: Female
  Weight: 47 kg

DRUGS (10)
  1. CLARITH [Interacting]
     Active Substance: CLARITHROMYCIN
     Indication: CHRONIC SINUSITIS
     Dosage: 200 MG, QD, OVER A MONTH AGO
     Route: 048
  2. ZYPREXA [Concomitant]
     Active Substance: OLANZAPINE
     Indication: SCHIZOPHRENIFORM DISORDER
     Dosage: 2.5 MG, QD
     Route: 048
     Dates: start: 20200525, end: 20200712
  3. LATUDA [Suspect]
     Active Substance: LURASIDONE HYDROCHLORIDE
     Indication: SCHIZOPHRENIFORM DISORDER
     Dosage: 20 MG, QD
     Route: 048
     Dates: start: 20200713, end: 20200716
  4. MEILAX [Concomitant]
     Active Substance: ETHYL LOFLAZEPATE
     Indication: SCHIZOPHRENIFORM DISORDER
     Dosage: 1 MG, QD
     Route: 048
     Dates: start: 20200508, end: 20200719
  5. ZYPREXA [Concomitant]
     Active Substance: OLANZAPINE
     Indication: DEPRESSIVE SYMPTOM
  6. LATUDA [Interacting]
     Active Substance: LURASIDONE HYDROCHLORIDE
     Indication: DEPRESSIVE SYMPTOM
  7. MYSLEE [Concomitant]
     Active Substance: ZOLPIDEM TARTRATE
     Indication: DEPRESSIVE SYMPTOM
  8. CARBOCISTEINE [Concomitant]
     Active Substance: CARBOCYSTEINE
     Indication: CHRONIC SINUSITIS
     Dosage: 500 MG, BID, OVER A MONTH AGO
     Route: 048
  9. MEILAX [Concomitant]
     Active Substance: ETHYL LOFLAZEPATE
     Indication: DEPRESSIVE SYMPTOM
  10. MYSLEE [Concomitant]
     Active Substance: ZOLPIDEM TARTRATE
     Indication: SCHIZOPHRENIFORM DISORDER
     Dosage: 5 MG, QD
     Route: 048
     Dates: start: 20200508

REACTIONS (8)
  - Asthenia [Recovered/Resolved]
  - Musculoskeletal stiffness [Recovered/Resolved]
  - Contraindicated product administered [Unknown]
  - Akathisia [Recovered/Resolved]
  - Gait disturbance [Recovered/Resolved]
  - Product use in unapproved indication [Unknown]
  - Drug interaction [Recovered/Resolved]
  - Pyrexia [Recovered/Resolved]

NARRATIVE: CASE EVENT DATE: 202007
